FAERS Safety Report 8272721-4 (Version None)
Quarter: 2012Q2

REPORT INFORMATION
  Report Type: 
  Country: None (occurrence: None)
  Receive Date: 20120411
  Receipt Date: 20120329
  Transmission Date: 20120825
  Serious: Yes (Hospitalization)
  Sender: FDA-Public Use
  Company Number: AU-BAXTER-2012BAX001430

PATIENT
  Sex: Female

DRUGS (3)
  1. KIOVIG [Suspect]
     Route: 042
     Dates: start: 20120224, end: 20120224
  2. KIOVIG [Suspect]
     Route: 042
     Dates: start: 20120316, end: 20120316
  3. KIOVIG [Suspect]
     Indication: IDIOPATHIC THROMBOCYTOPENIC PURPURA
     Route: 042
     Dates: start: 20120127, end: 20120127

REACTIONS (2)
  - FEELING OF BODY TEMPERATURE CHANGE [None]
  - DYSPNOEA [None]
